FAERS Safety Report 5636413-X (Version None)
Quarter: 2008Q1

REPORT INFORMATION
  Report Type: 
  Country: None (occurrence: None)
  Receive Date: 20080225
  Receipt Date: 20071218
  Transmission Date: 20080703
  Serious: No
  Sender: FDA-Public Use
  Company Number: A0699534A

PATIENT
  Age: 82 Year
  Sex: Male

DRUGS (6)
  1. VERAMYST [Suspect]
     Dosage: 1PUFF TWICE PER DAY
     Route: 045
     Dates: start: 20071210
  2. CLARINEX [Suspect]
  3. MELOXICAM [Concomitant]
  4. LIPITOR [Concomitant]
  5. ARICEPT [Concomitant]
  6. ATENOLOL [Concomitant]

REACTIONS (1)
  - DRUG INEFFECTIVE [None]
